FAERS Safety Report 6421449-1 (Version None)
Quarter: 2009Q4

REPORT INFORMATION
  Report Type: 
  Country: None (occurrence: None)
  Receive Date: 20091030
  Receipt Date: 20091023
  Transmission Date: 20100525
  Serious: Yes (Hospitalization)
  Sender: FDA-Public Use
  Company Number: US-BAYER-200935291NA

PATIENT
  Age: 85 Year
  Sex: Male
  Weight: 61 kg

DRUGS (22)
  1. AVELOX [Suspect]
     Indication: PNEUMONIA
     Dosage: UNIT DOSE: 400 MG
     Dates: start: 20091003, end: 20091009
  2. AVELOX [Suspect]
     Dosage: UNIT DOSE: 400 MG
     Dates: start: 20090922, end: 20090928
  3. AVELOX [Suspect]
     Indication: DRUG USE FOR UNKNOWN INDICATION
     Route: 042
     Dates: start: 20090901
  4. FUROSEMIDE [Concomitant]
  5. SYNTHROID [Concomitant]
     Dosage: 1 AND 1/2 TABS DAILY
     Route: 048
  6. GUAIFENESIN [Concomitant]
     Dosage: TOTAL DAILY DOSE: 800 MG
     Route: 048
  7. M.V.I. [Concomitant]
     Route: 048
  8. XOPENEX [Concomitant]
     Route: 055
  9. TYLENOL [Concomitant]
     Dosage: 650 MG EVERY 4-6 HOURS AS NEEDED
     Route: 048
  10. METOPROLOL [Concomitant]
     Dosage: TOTAL DAILY DOSE: 50 MG
  11. SIMVASTATIN [Concomitant]
     Route: 048
  12. POTASSIUM CHLORIDE [Concomitant]
     Route: 048
  13. OMEPRAZOLE [Concomitant]
     Route: 048
  14. FLOMAX [Concomitant]
     Route: 048
  15. FERROUS GLUCONATE [Concomitant]
     Dosage: 324-325
     Route: 048
  16. MIRTAZAPINE [Concomitant]
     Route: 048
  17. WARFARIN SODIUM [Concomitant]
  18. CITAPROLAM [Concomitant]
     Route: 048
  19. ADVAIR DISKUS 100/50 [Concomitant]
     Dosage: 250/50
  20. SYMBICORT [Concomitant]
     Dosage: 160/4.5
     Route: 055
  21. FLOVENT [Concomitant]
  22. SPIRIVA [Concomitant]

REACTIONS (4)
  - CHILLS [None]
  - HAEMORRHAGE [None]
  - PNEUMONIA [None]
  - PYREXIA [None]
